FAERS Safety Report 6354651-8 (Version None)
Quarter: 2009Q3

REPORT INFORMATION
  Report Type: 
  Country: None (occurrence: None)
  Receive Date: 20090914
  Receipt Date: 20090903
  Transmission Date: 20100115
  Serious: Yes (Other)
  Sender: FDA-Public Use
  Company Number: US-AMGEN-QUU361172

PATIENT
  Sex: Male
  Weight: 62.7 kg

DRUGS (6)
  1. NEULASTA [Suspect]
     Indication: CHEMOTHERAPY
     Route: 058
     Dates: start: 20090813, end: 20090813
  2. VECTIBIX [Suspect]
     Indication: COLORECTAL CANCER
     Route: 042
     Dates: start: 20090809
  3. LEUCOVORIN CALCIUM [Concomitant]
  4. FLUORO-URACIL [Concomitant]
  5. OXALIPLATIN [Concomitant]
  6. XELODA [Concomitant]
     Dates: start: 20090809

REACTIONS (1)
  - NEUTROPENIA [None]
